FAERS Safety Report 25103817 (Version 1)
Quarter: 2025Q1

REPORT INFORMATION
  Report Type: Report from Study
  Country: JP (occurrence: JP)
  Receive Date: 20250321
  Receipt Date: 20250321
  Transmission Date: 20250409
  Serious: Yes (Other)
  Sender: ROCHE
  Company Number: JP-CHUGAI-2025008387

PATIENT
  Weight: 63.3 kg

DRUGS (20)
  1. RITUXIMAB [Suspect]
     Active Substance: RITUXIMAB
     Indication: Diffuse large B-cell lymphoma
     Dosage: 670 MILLIGRAM, QD
     Route: 042
     Dates: start: 20240730, end: 20240730
  2. RITUXIMAB [Suspect]
     Active Substance: RITUXIMAB
     Dosage: 530 MILLIGRAM, QD
     Route: 042
     Dates: start: 20240903, end: 20240903
  3. RITUXIMAB [Suspect]
     Active Substance: RITUXIMAB
     Dosage: 630 MILLIGRAM, QD
     Route: 042
     Dates: start: 20240930, end: 20240930
  4. RITUXIMAB [Suspect]
     Active Substance: RITUXIMAB
     Dosage: 630 MILLIGRAM, QD
     Route: 042
     Dates: start: 20241023, end: 20241023
  5. POLIVY [Suspect]
     Active Substance: POLATUZUMAB VEDOTIN-PIIQ
     Indication: Diffuse large B-cell lymphoma
     Dosage: 128 MILLIGRAM, QD
     Route: 042
     Dates: start: 20240730, end: 20240730
  6. POLIVY [Suspect]
     Active Substance: POLATUZUMAB VEDOTIN-PIIQ
     Dosage: 110 MILLIGRAM, QD
     Route: 042
     Dates: start: 20240903, end: 20240903
  7. POLIVY [Suspect]
     Active Substance: POLATUZUMAB VEDOTIN-PIIQ
     Dosage: 110 MILLIGRAM, QD
     Route: 042
     Dates: start: 20240930, end: 20240930
  8. POLIVY [Suspect]
     Active Substance: POLATUZUMAB VEDOTIN-PIIQ
     Dosage: 110 MILLIGRAM, QD
     Route: 042
     Dates: start: 20241023, end: 20241023
  9. METHYLPREDNISOLONE SODIUM SUCCINATE [Suspect]
     Active Substance: METHYLPREDNISOLONE SODIUM SUCCINATE
     Indication: Diffuse large B-cell lymphoma
     Dosage: 60 MILLIGRAM, QD
     Route: 042
     Dates: start: 20240730, end: 20240730
  10. METHYLPREDNISOLONE SODIUM SUCCINATE [Suspect]
     Active Substance: METHYLPREDNISOLONE SODIUM SUCCINATE
     Dosage: 100 MILLIGRAM, QD
     Route: 042
     Dates: start: 20240903, end: 20240903
  11. METHYLPREDNISOLONE SODIUM SUCCINATE [Suspect]
     Active Substance: METHYLPREDNISOLONE SODIUM SUCCINATE
     Dosage: 80 MILLIGRAM, QD
     Route: 042
     Dates: start: 20240930, end: 20240930
  12. METHYLPREDNISOLONE SODIUM SUCCINATE [Suspect]
     Active Substance: METHYLPREDNISOLONE SODIUM SUCCINATE
     Dosage: 80 MILLIGRAM, QD
     Route: 042
     Dates: start: 20241023, end: 20241023
  13. CYCLOPHOSPHAMIDE [Suspect]
     Active Substance: CYCLOPHOSPHAMIDE
     Indication: Diffuse large B-cell lymphoma
     Dosage: 1300 MILLIGRAM, QD
     Route: 042
     Dates: start: 20240730, end: 20240730
  14. CYCLOPHOSPHAMIDE [Suspect]
     Active Substance: CYCLOPHOSPHAMIDE
     Dosage: 1260 MILLIGRAM, QD
     Route: 042
     Dates: start: 20240903, end: 20240903
  15. CYCLOPHOSPHAMIDE [Suspect]
     Active Substance: CYCLOPHOSPHAMIDE
     Dosage: 1000 MILLIGRAM, QD
     Route: 042
     Dates: start: 20240930, end: 20240930
  16. CYCLOPHOSPHAMIDE [Suspect]
     Active Substance: CYCLOPHOSPHAMIDE
     Dosage: 1000 MILLIGRAM, QD
     Route: 042
     Dates: start: 20241023, end: 20241023
  17. DOXORUBICIN HYDROCHLORIDE [Suspect]
     Active Substance: DOXORUBICIN HYDROCHLORIDE
     Indication: Diffuse large B-cell lymphoma
     Dosage: 88 MILLIGRAM, QD
     Route: 042
     Dates: start: 20240730, end: 20240730
  18. DOXORUBICIN HYDROCHLORIDE [Suspect]
     Active Substance: DOXORUBICIN HYDROCHLORIDE
     Dosage: 84 MILLIGRAM, QD
     Route: 042
     Dates: start: 20240903, end: 20240903
  19. DOXORUBICIN HYDROCHLORIDE [Suspect]
     Active Substance: DOXORUBICIN HYDROCHLORIDE
     Dosage: 68 MILLIGRAM, QD
     Route: 042
     Dates: start: 20240930, end: 20240930
  20. DOXORUBICIN HYDROCHLORIDE [Suspect]
     Active Substance: DOXORUBICIN HYDROCHLORIDE
     Dosage: 68 MILLIGRAM, QD
     Route: 042
     Dates: start: 20241023, end: 20241023

REACTIONS (5)
  - Cardiac failure [Unknown]
  - Diarrhoea [Unknown]
  - Pneumonia [Unknown]
  - Febrile neutropenia [Unknown]
  - Constipation [Unknown]
